FAERS Safety Report 18763039 (Version 4)
Quarter: 2021Q4

REPORT INFORMATION
  Report Type: Spontaneous
  Country: MX (occurrence: MX)
  Receive Date: 20210120
  Receipt Date: 20211203
  Transmission Date: 20220303
  Serious: No
  Sender: FDA-Public Use
  Company Number: MX-PFIZER INC-2020396390

PATIENT
  Sex: Male

DRUGS (1)
  1. GENOTROPIN [Suspect]
     Active Substance: SOMATROPIN
     Dosage: UNK
     Route: 058
     Dates: start: 20210113

REACTIONS (5)
  - Product prescribing error [Unknown]
  - Product preparation issue [Unknown]
  - Wrong technique in device usage process [Unknown]
  - Device use issue [Recovered/Resolved]
  - Drug dose omission by device [Unknown]
